FAERS Safety Report 6702493-3 (Version None)
Quarter: 2010Q2

REPORT INFORMATION
  Report Type: 
  Country: None (occurrence: None)
  Receive Date: 20100429
  Receipt Date: 20100422
  Transmission Date: 20101027
  Serious: Yes (Other)
  Sender: FDA-Public Use
  Company Number: B0650399A

PATIENT
  Sex: Female

DRUGS (3)
  1. TYVERB [Suspect]
     Indication: BREAST CANCER
     Dosage: 1250MG PER DAY
     Route: 065
     Dates: start: 20100104
  2. MILURIT [Concomitant]
  3. TRANSTEC [Concomitant]

REACTIONS (2)
  - DIARRHOEA [None]
  - SKIN TOXICITY [None]
